FAERS Safety Report 20867402 (Version 2)
Quarter: 2022Q2

REPORT INFORMATION
  Report Type: Report from Study
  Country: AU (occurrence: AU)
  Receive Date: 20220524
  Receipt Date: 20220531
  Transmission Date: 20220720
  Serious: Yes (Life-Threatening, Hospitalization)
  Sender: FDA-Public Use
  Company Number: AU-PFIZER INC-202200738784

PATIENT
  Weight: 5.1 kg

DRUGS (29)
  1. GEMTUZUMAB OZOGAMICIN [Suspect]
     Active Substance: GEMTUZUMAB OZOGAMICIN
     Indication: Chemotherapy
     Dosage: 0.5 MG, Q24H
     Route: 042
     Dates: start: 20220507, end: 20220507
  2. MITOXANTRONE HYDROCHLORIDE [Suspect]
     Active Substance: MITOXANTRONE HYDROCHLORIDE
     Indication: Chemotherapy
     Dosage: 2 MG/M2, DAILY
     Route: 042
     Dates: start: 20220504, end: 20220507
  3. ALLOPURINOL [Concomitant]
     Active Substance: ALLOPURINOL
     Indication: Prophylaxis
     Dosage: 20 MG,Q8H
     Route: 048
     Dates: start: 20220507, end: 20220509
  4. AMPHOTERICIN B [Concomitant]
     Active Substance: AMPHOTERICIN B
     Indication: Prophylaxis
     Dosage: 5 MG, CYCLIC
     Route: 042
     Dates: start: 20220506, end: 20220518
  5. ATROPINE [Concomitant]
     Active Substance: ATROPINE
     Indication: Anaesthesia
     Dosage: 120 UG, ONCE
     Route: 042
     Dates: start: 20220517, end: 20220517
  6. CALCIUM CARBONATE [Concomitant]
     Active Substance: CALCIUM CARBONATE
     Indication: Hyperphosphataemia
     Dosage: 50 MG,TDS
     Route: 048
     Dates: start: 20220505, end: 20220509
  7. CALCIUM CHLORIDE [Concomitant]
     Active Substance: CALCIUM CHLORIDE
     Indication: Hypocalcaemia
     Dosage: 0.3 MMOL
     Route: 042
     Dates: start: 20220505, end: 20220506
  8. CLONIDINE [Concomitant]
     Active Substance: CLONIDINE
     Indication: Hypertension
     Dosage: 5 UG, ONCE
     Route: 048
     Dates: start: 20220505, end: 20220505
  9. CYTARABINE [Concomitant]
     Active Substance: CYTARABINE
     Indication: Chemotherapy
     Dosage: 18 MG, Q12H
     Route: 042
     Dates: start: 20220504, end: 20220517
  10. DEXRAZOXANE [Concomitant]
     Active Substance: DEXRAZOXANE
     Indication: Chemotherapy
     Dosage: 80 MG, QD
     Route: 042
     Dates: start: 20220504, end: 20220507
  11. FENTANYL [Concomitant]
     Active Substance: FENTANYL
     Indication: Analgesic therapy
     Dosage: 2 UG, QD
     Dates: start: 20220504, end: 20220504
  12. FUROSEMIDE [Concomitant]
     Active Substance: FUROSEMIDE
     Indication: Polyuria
     Dosage: UNK, 3X/DAY (Q8H)
     Route: 042
     Dates: start: 20220504, end: 20220517
  13. MAGNESIUM [Concomitant]
     Active Substance: MAGNESIUM
     Indication: Supplementation therapy
     Dosage: 0.5 MMOL, QD
     Route: 042
     Dates: start: 20220505, end: 20220508
  14. MEROPENEM [Concomitant]
     Active Substance: MEROPENEM
     Indication: Febrile neutropenia
     Dosage: 220 MG, Q8H
     Route: 042
     Dates: start: 20220511, end: 20220517
  15. NEOSTIGMINE [Concomitant]
     Active Substance: NEOSTIGMINE
     Indication: Anaesthesia
     Dosage: 0.25 MG, ONCE
     Route: 042
     Dates: start: 20220517, end: 20220517
  16. NYSTATIN [Concomitant]
     Active Substance: NYSTATIN
     Indication: Oral candidiasis
     Dosage: 1 ML, ONCE
     Route: 048
     Dates: start: 20220507, end: 20220507
  17. ONDANSETRON [Concomitant]
     Active Substance: ONDANSETRON
     Indication: Prophylaxis of nausea and vomiting
     Dosage: 1 MG, BD
     Route: 042
     Dates: start: 20220504, end: 20220518
  18. OXYCODONE [Concomitant]
     Active Substance: OXYCODONE
     Indication: Analgesic therapy
     Dosage: 0.5 MG, Q4H
     Route: 048
     Dates: start: 20220507, end: 20220510
  19. ACETAMINOPHEN [Concomitant]
     Active Substance: ACETAMINOPHEN
     Indication: Prophylaxis
     Dosage: 0.08 G, QD
     Route: 042
     Dates: start: 20220504, end: 20220518
  20. PHYTONADIONE [Concomitant]
     Active Substance: PHYTONADIONE
     Indication: Vitamin K deficiency
     Dosage: 1 MG, QD
     Route: 042
     Dates: start: 20220503, end: 20220511
  21. PIPERACILLIN AND TAZOBACTAM [Concomitant]
     Active Substance: PIPERACILLIN SODIUM\TAZOBACTAM SODIUM
     Indication: Febrile neutropenia
     Dosage: 540 MG, QID
     Route: 042
     Dates: start: 20220503, end: 20220518
  22. PROMETHAZINE [Concomitant]
     Active Substance: PROMETHAZINE HYDROCHLORIDE
     Indication: Prophylaxis of nausea and vomiting
     Dosage: 2.5 MG, ONCE
     Route: 042
     Dates: start: 20220507, end: 20220507
  23. PROPOFOL [Concomitant]
     Active Substance: PROPOFOL
     Indication: Anaesthesia
     Dosage: 10 MG, ONCE
     Route: 042
     Dates: start: 20220517, end: 20220517
  24. RASBURICASE [Concomitant]
     Active Substance: RASBURICASE
     Indication: Prophylaxis
     Dosage: 1 MG, QD
     Route: 042
     Dates: start: 20220504, end: 20220506
  25. RIBAVIRIN [Concomitant]
     Active Substance: RIBAVIRIN
     Indication: Respiratory syncytial virus infection
     Dosage: 190 MG, ONCE
     Route: 042
     Dates: start: 20220511, end: 20220518
  26. SUGAMMADEX [Concomitant]
     Active Substance: SUGAMMADEX
     Indication: Anaesthesia
     Dosage: 10 MG, QD
     Route: 042
     Dates: start: 20220504, end: 20220504
  27. SULFAMETHOXAZOLE\TRIMETHOPRIM [Concomitant]
     Active Substance: SULFAMETHOXAZOLE\TRIMETHOPRIM
     Indication: Antifungal prophylaxis
     Dosage: 14 MG, BD
     Route: 048
     Dates: start: 20220506, end: 20220518
  28. VANCOMYCIN [Concomitant]
     Active Substance: VANCOMYCIN
     Indication: Febrile neutropenia
     Dosage: 80 MG, Q6H
     Route: 042
     Dates: start: 20220511, end: 20220517
  29. VECURONIUM [Concomitant]
     Active Substance: VECURONIUM BROMIDE
     Indication: Anaesthesia
     Dosage: 0.6 MG, QD
     Route: 042
     Dates: start: 20220504, end: 20220517

REACTIONS (1)
  - Respiratory distress [Not Recovered/Not Resolved]

NARRATIVE: CASE EVENT DATE: 20220511
